FAERS Safety Report 23202024 (Version 1)
Quarter: 2023Q4

REPORT INFORMATION
  Report Type: Spontaneous
  Country: CN (occurrence: CN)
  Receive Date: 20231120
  Receipt Date: 20231120
  Transmission Date: 20240110
  Serious: Yes (Other)
  Sender: FDA-Public Use
  Company Number: None

PATIENT
  Age: 2 Year
  Sex: Male
  Weight: 12 kg

DRUGS (12)
  1. CYCLOPHOSPHAMIDE [Suspect]
     Active Substance: CYCLOPHOSPHAMIDE
     Indication: B-cell type acute leukaemia
     Dosage: 0.1 G, Q12H, D2-D4, DILUTED WITH 50 ML 100ML/H OF SODIUM CHLORIDE
     Route: 041
     Dates: start: 20231024, end: 20231027
  2. CYCLOPHOSPHAMIDE [Suspect]
     Active Substance: CYCLOPHOSPHAMIDE
     Indication: Chemotherapy
  3. SODIUM CHLORIDE [Suspect]
     Active Substance: SODIUM CHLORIDE
     Indication: Medication dilution
     Dosage: 0.9% 50 ML (100ML/H), Q12H, D2-D4, USED TO DILUTE 0.1 G OF CYCLOPHOSPHAMIDE
     Route: 041
     Dates: start: 20231024, end: 20231027
  4. SODIUM CHLORIDE [Suspect]
     Active Substance: SODIUM CHLORIDE
     Dosage: 0.9% 20 ML, ONE TIME IN ONE DAY, USED TO DILUTE 0.78 MG OF VINCRISTINE SULFATE (SLOWLY FOR MORE THAN
     Route: 042
     Dates: start: 20231023, end: 20231023
  5. SODIUM CHLORIDE [Suspect]
     Active Substance: SODIUM CHLORIDE
     Dosage: 0.9% 4 ML, ONE TIME IN ONE DAY, USED TO DILUTE 10 MG OF METHOTREXATE
     Route: 037
     Dates: start: 20231023, end: 20231023
  6. DEXTROSE [Suspect]
     Active Substance: DEXTROSE\DEXTROSE MONOHYDRATE
     Indication: Medication dilution
     Dosage: 5% 250 ML (60-100ML/H), Q12H, USED TO DILUTE 1 G OF CYTARABINE
     Route: 041
     Dates: start: 20231027, end: 20231028
  7. CYTARABINE [Suspect]
     Active Substance: CYTARABINE
     Indication: B-cell type acute leukaemia
     Dosage: 1 G, Q12H, DILUTED WITH 250 ML OF 5% GLUCOSE (60-100ML/H)
     Route: 041
     Dates: start: 20231027, end: 20231028
  8. CYTARABINE [Suspect]
     Active Substance: CYTARABINE
     Indication: Chemotherapy
  9. METHOTREXATE [Suspect]
     Active Substance: METHOTREXATE
     Indication: B-cell type acute leukaemia
     Dosage: 10 MG, ONE TIME IN ONE DAY, DILUTED WITH 4 ML OF 0.9% SODIUM CHLORIDE
     Route: 037
     Dates: start: 20231023, end: 20231023
  10. METHOTREXATE [Suspect]
     Active Substance: METHOTREXATE
     Indication: Chemotherapy
  11. VINCRISTINE SULFATE [Suspect]
     Active Substance: VINCRISTINE SULFATE
     Indication: B-cell type acute leukaemia
     Dosage: 0.78 MG, ONE TIME IN ONE DAY, DILUTED WITH 20 ML OF 0.9% SODIUM CHLORIDE (SLOWLY FOR MORE THAN 5 MIN
     Route: 042
     Dates: start: 20231023, end: 20231023
  12. VINCRISTINE SULFATE [Suspect]
     Active Substance: VINCRISTINE SULFATE
     Indication: Chemotherapy

REACTIONS (2)
  - Myelosuppression [Recovering/Resolving]
  - Hepatic enzyme increased [Recovering/Resolving]

NARRATIVE: CASE EVENT DATE: 20231029
